FAERS Safety Report 7700027-8 (Version None)
Quarter: 2011Q3

REPORT INFORMATION
  Report Type: 
  Country: None (occurrence: None)
  Receive Date: 20110822
  Receipt Date: 20110809
  Transmission Date: 20111222
  Serious: Yes (Hospitalization, Other)
  Sender: FDA-Public Use
  Company Number: DE-ELI_LILLY_AND_COMPANY-DE201108003122

PATIENT
  Age: 83 Year
  Sex: Female

DRUGS (1)
  1. CYMBALTA [Suspect]
     Indication: DIABETIC NEUROPATHY
     Dosage: UNK
     Route: 048
     Dates: end: 20110706

REACTIONS (5)
  - SYNCOPE [None]
  - DIARRHOEA [None]
  - DEHYDRATION [None]
  - THORACIC VERTEBRAL FRACTURE [None]
  - FALL [None]
